FAERS Safety Report 9649345 (Version 2)
Quarter: 2013Q4

REPORT INFORMATION
  Report Type: Spontaneous
  Country: FR (occurrence: FR)
  Receive Date: 20131028
  Receipt Date: 20131118
  Transmission Date: 20140711
  Serious: Yes (Hospitalization)
  Sender: FDA-Public Use
  Company Number: FR-PFIZER INC-2013301321

PATIENT
  Age: 49 Year
  Sex: Female
  Weight: 52 kg

DRUGS (4)
  1. XANAX [Suspect]
     Indication: DEPRESSION
     Dosage: UNK
     Route: 048
  2. BACLOFENE [Suspect]
     Dosage: 120 MG, DAILY
     Route: 048
     Dates: start: 201302
  3. MIANSERIN [Suspect]
     Indication: DEPRESSION
     Dosage: 30 MG, DAILY
     Route: 048
  4. STILNOX [Suspect]
     Indication: INSOMNIA
     Dosage: 10 MG, DAILY
     Route: 048

REACTIONS (5)
  - Off label use [Not Recovered/Not Resolved]
  - Asthenia [Recovered/Resolved]
  - Vision blurred [Recovered/Resolved]
  - Fall [Recovered/Resolved]
  - Subcutaneous haematoma [Recovered/Resolved]
